FAERS Safety Report 5475828-X (Version None)
Quarter: 2007Q4

REPORT INFORMATION
  Report Type: 
  Country: None (occurrence: None)
  Receive Date: 20071003
  Receipt Date: 20070926
  Transmission Date: 20080405
  Serious: Yes (Other)
  Sender: FDA-Public Use
  Company Number: B0488846A

PATIENT
  Sex: Female

DRUGS (2)
  1. ZIAGEN [Suspect]
     Indication: HIV INFECTION
     Route: 065
  2. UNKNOWN ANTIRETROVIRAL TREATMENT [Concomitant]
     Indication: HIV INFECTION
     Route: 065

REACTIONS (2)
  - BLOOD CREATININE INCREASED [None]
  - NEOPLASM [None]
